FAERS Safety Report 4994753-1 (Version None)
Quarter: 2006Q1

REPORT INFORMATION
  Report Type: 
  Country: None (occurrence: None)
  Receive Date: 20060313
  Receipt Date: 20050427
  Transmission Date: 20060701
  Serious: Yes (Hospitalization)
  Sender: FDA-Public Use
  Company Number: PHEH2005US04893

PATIENT
  Age: 56 Year
  Sex: Female

DRUGS (2)
  1. TRILEPTAL [Suspect]
     Indication: CONVULSION
     Dates: end: 20050401
  2. TRILEPTAL [Suspect]
     Dosage: 900 MG,BID,ORAL
     Route: 048
     Dates: start: 20050401

REACTIONS (4)
  - DIZZINESS [None]
  - HYPONATRAEMIA [None]
  - MUSCLE SPASMS [None]
  - VOMITING [None]
